FAERS Safety Report 6373994-5 (Version None)
Quarter: 2009Q3

REPORT INFORMATION
  Report Type: 
  Country: None (occurrence: None)
  Receive Date: 20090924
  Receipt Date: 20080604
  Transmission Date: 20100115
  Serious: Yes (Other)
  Sender: FDA-Public Use
  Company Number: US-ASTRAZENECA-2006UW27963

PATIENT
  Age: 12811 Day
  Sex: Male
  Weight: 90.7 kg

DRUGS (13)
  1. SEROQUEL [Suspect]
     Indication: INSOMNIA
     Dosage: 75-200 MG
     Route: 048
     Dates: start: 20031002
  2. SEROQUEL [Suspect]
     Indication: SCHIZOPHRENIA
     Dosage: 75-200 MG
     Route: 048
     Dates: start: 20031002
  3. SEROQUEL [Suspect]
     Indication: BIPOLAR DISORDER
     Dosage: 75-200 MG
     Route: 048
     Dates: start: 20031002
  4. SEROQUEL [Suspect]
     Indication: PARANOIA
     Dosage: 75-200 MG
     Route: 048
     Dates: start: 20031002
  5. SEROQUEL [Suspect]
     Route: 048
     Dates: start: 20031007, end: 20050428
  6. SEROQUEL [Suspect]
     Route: 048
     Dates: start: 20031007, end: 20050428
  7. SEROQUEL [Suspect]
     Route: 048
     Dates: start: 20031007, end: 20050428
  8. SEROQUEL [Suspect]
     Route: 048
     Dates: start: 20031007, end: 20050428
  9. RISPERDAL [Concomitant]
     Route: 048
     Dates: start: 20050101
  10. ZYPREXA [Concomitant]
  11. GEODON [Concomitant]
  12. PROZAC [Concomitant]
     Route: 048
     Dates: start: 20030729
  13. ZOLOFT [Concomitant]
     Route: 048
     Dates: start: 20031111

REACTIONS (4)
  - DIABETES MELLITUS [None]
  - DIABETIC NEUROPATHY [None]
  - HYPERGLYCAEMIA [None]
  - TYPE 1 DIABETES MELLITUS [None]
